FAERS Safety Report 11339247 (Version 1)
Quarter: 2015Q3

REPORT INFORMATION
  Report Type: Spontaneous
  Country: AU (occurrence: AU)
  Receive Date: 20150804
  Receipt Date: 20150804
  Transmission Date: 20151125
  Serious: Yes (Other)
  Sender: FDA-Public Use
  Company Number: AU-ALLERGAN-1515000US

PATIENT
  Age: 15 Year
  Sex: Female

DRUGS (1)
  1. BOTOX [Suspect]
     Active Substance: ONABOTULINUMTOXINA
     Indication: ANAL SPHINCTER ATONY
     Dosage: UNK, SINGLE
     Route: 030

REACTIONS (3)
  - Off label use [Unknown]
  - Constipation [Recovered/Resolved]
  - Drug ineffective for unapproved indication [Unknown]
